FAERS Safety Report 19105124 (Version 1)
Quarter: 2021Q2

REPORT INFORMATION
  Report Type: Spontaneous
  Country: AU (occurrence: AU)
  Receive Date: 20210408
  Receipt Date: 20210408
  Transmission Date: 20210717
  Serious: Yes (Hospitalization, Other)
  Sender: FDA-Public Use
  Company Number: AU-MACLEODS PHARMACEUTICALS US LTD-MAC2021030719

PATIENT

DRUGS (12)
  1. TRAMADOL. [Suspect]
     Active Substance: TRAMADOL
     Indication: PRODUCT USED FOR UNKNOWN INDICATION
     Dosage: 20 MILLIGRAM, TOTAL, IV TRAMADOL 2 MG/KG (20 MG DOSE) AT 12:30
     Route: 042
  2. MORPHINE [Suspect]
     Active Substance: MORPHINE
     Dosage: 20 MICROGRAM/KILOGRAM, Q.H., INFUSION, INTRAVENOUS DRIP
     Route: 050
  3. MORPHINE [Suspect]
     Active Substance: MORPHINE
     Indication: PRODUCT USED FOR UNKNOWN INDICATION
     Dosage: 10 MICROGRAM/KILOGRAM, Q.H., INFUSION, INTRAVENOUS DRIP
     Route: 050
  4. OXYGEN. [Concomitant]
     Active Substance: OXYGEN
     Indication: PRODUCT USED FOR UNKNOWN INDICATION
     Dosage: 9 LITER, 1 MINUTE
     Route: 065
  5. ROPIVACAINE. [Concomitant]
     Active Substance: ROPIVACAINE HYDROCHLORIDE
     Indication: PRODUCT USED FOR UNKNOWN INDICATION
     Dosage: UNK
     Route: 065
  6. EPINEPHRINE. [Concomitant]
     Active Substance: EPINEPHRINE
     Indication: PRODUCT USED FOR UNKNOWN INDICATION
     Dosage: UNK
     Route: 065
  7. FENTANYL. [Suspect]
     Active Substance: FENTANYL
     Dosage: 5 MICROGRAM
     Route: 042
  8. MORPHINE [Suspect]
     Active Substance: MORPHINE
     Dosage: UNK, 3 TOTAL, THREE MORPHINE BOLUSES ADMINISTERED, INTRAVENOUS BOLUS
     Route: 050
  9. PARACETAMOL [Concomitant]
     Active Substance: ACETAMINOPHEN
     Indication: PAIN
     Dosage: UNK
     Route: 042
  10. IBUPROFEN. [Concomitant]
     Active Substance: IBUPROFEN
     Indication: PAIN
     Dosage: UNK
     Route: 048
  11. CEFAZOLIN [Concomitant]
     Active Substance: CEFAZOLIN
     Indication: PRODUCT USED FOR UNKNOWN INDICATION
     Dosage: 1 DOSAGE FORM, 2 TOTAL
     Route: 065
  12. FENTANYL. [Suspect]
     Active Substance: FENTANYL
     Indication: PRODUCT USED FOR UNKNOWN INDICATION
     Dosage: 75 MICROGRAM, INTRAOPERATIVE, TOTAL
     Route: 042

REACTIONS (7)
  - Condition aggravated [Recovered/Resolved]
  - Sedation complication [Recovered/Resolved]
  - Aspiration [Recovered/Resolved]
  - Respiratory acidosis [Recovering/Resolving]
  - Respiratory distress [Recovered/Resolved]
  - Metabolic acidosis [Recovering/Resolving]
  - Product communication issue [Recovered/Resolved]
